FAERS Safety Report 26058636 (Version 1)
Quarter: 2025Q4

REPORT INFORMATION
  Report Type: Spontaneous
  Country: EU (occurrence: EU)
  Receive Date: 20251118
  Receipt Date: 20251118
  Transmission Date: 20260118
  Serious: Yes (Hospitalization, Other)
  Sender: AUROBINDO
  Company Number: EU-DCGMA-25205980

PATIENT
  Age: 50 Year
  Sex: Male

DRUGS (1)
  1. RIZATRIPTAN [Suspect]
     Active Substance: RIZATRIPTAN
     Indication: Migraine
     Dosage: 10 MILLIGRAM

REACTIONS (1)
  - Portal vein thrombosis [Unknown]

NARRATIVE: CASE EVENT DATE: 20250912
